FAERS Safety Report 24018716 (Version 1)
Quarter: 2024Q2

REPORT INFORMATION
  Report Type: Spontaneous
  Country: US (occurrence: None)
  Receive Date: 20240626
  Receipt Date: 20240626
  Transmission Date: 20240716
  Serious: Yes (Other)
  Sender: FDA-Public Use
  Company Number: None

PATIENT
  Age: 32 Year
  Sex: Male

DRUGS (1)
  1. DIMETHYL FUMARATE [Suspect]
     Active Substance: DIMETHYL FUMARATE
     Indication: Multiple sclerosis
     Dosage: FREQUENCY : TWICE A DAY;?

REACTIONS (8)
  - Drug ineffective [None]
  - Mood swings [None]
  - Feeling abnormal [None]
  - Aggression [None]
  - Vision blurred [None]
  - Epistaxis [None]
  - Suicidal ideation [None]
  - Abnormal behaviour [None]
